FAERS Safety Report 19123210 (Version 1)
Quarter: 2021Q2

REPORT INFORMATION
  Report Type: Spontaneous
  Country: GB (occurrence: GB)
  Receive Date: 20210412
  Receipt Date: 20210412
  Transmission Date: 20210717
  Serious: Yes (Disabling, Other)
  Sender: FDA-Public Use
  Company Number: GB-MYLANLABS-2021M1021645

PATIENT
  Age: 53 Year
  Sex: Female
  Weight: 67.58 kg

DRUGS (4)
  1. RELVAR ELLIPTA                     /08236201/ [Concomitant]
     Active Substance: FLUTICASONE FUROATE\VILANTEROL TRIFENATATE
     Indication: ILL-DEFINED DISORDER
     Dosage: UNK
  2. TAMOXIFEN [Suspect]
     Active Substance: TAMOXIFEN
     Indication: ILL-DEFINED DISORDER
     Dosage: 20 MILLIGRAM, QD
     Route: 048
     Dates: start: 20190417, end: 20200901
  3. THYROXINE [Concomitant]
     Active Substance: LEVOTHYROXINE
     Indication: ILL-DEFINED DISORDER
     Dosage: UNK
  4. LIOTHYRONINE SODIUM. [Concomitant]
     Active Substance: LIOTHYRONINE SODIUM
     Indication: ILL-DEFINED DISORDER
     Dosage: UNK

REACTIONS (2)
  - Atrophic vulvovaginitis [Not Recovered/Not Resolved]
  - Micturition urgency [Not Recovered/Not Resolved]
